FAERS Safety Report 9387926 (Version 1)
Quarter: 2013Q3

REPORT INFORMATION
  Report Type: Spontaneous
  Country: US (occurrence: US)
  Receive Date: 20130708
  Receipt Date: 20130708
  Transmission Date: 20140515
  Serious: Yes (Other)
  Sender: FDA-Public Use
  Company Number: US-BAYER-2013-081228

PATIENT
  Age: 88 Year
  Sex: Female

DRUGS (5)
  1. AVELOX [Suspect]
     Indication: BRONCHITIS
     Dosage: 1 DF, QD, 1 TABLET A DAY FOR 1 WEEK
     Route: 048
     Dates: start: 20121026
  2. SYNTHROID [Concomitant]
  3. OXYBUTYNIN [Concomitant]
  4. DENOSUMAB [Concomitant]
  5. CITALOPRAM [Concomitant]

REACTIONS (4)
  - Neuropathy peripheral [Not Recovered/Not Resolved]
  - Hypoaesthesia [Not Recovered/Not Resolved]
  - Malaise [Not Recovered/Not Resolved]
  - Feeling abnormal [Not Recovered/Not Resolved]
